FAERS Safety Report 19927292 (Version 1)
Quarter: 2021Q4

REPORT INFORMATION
  Report Type: Report from Study
  Country: None (occurrence: US)
  Receive Date: 20211006
  Receipt Date: 20211006
  Transmission Date: 20220303
  Serious: Yes (Hospitalization)
  Sender: FDA-Public Use
  Company Number: US-ABBVIE-21K-163-4107337-00

PATIENT
  Sex: Male

DRUGS (2)
  1. DUOPA [Suspect]
     Active Substance: CARBIDOPA\LEVODOPA
     Indication: Parkinson^s disease
     Dosage: MD 3 ML CD 5.7 ML HOUR ED 3.5 ML
     Route: 050
     Dates: start: 202106, end: 2021
  2. DUOPA [Suspect]
     Active Substance: CARBIDOPA\LEVODOPA

REACTIONS (3)
  - Balance disorder [Unknown]
  - Fall [Unknown]
  - Hallucination [Unknown]

NARRATIVE: CASE EVENT DATE: 20210101
